FAERS Safety Report 9838257 (Version 1)
Quarter: 2013Q4

REPORT INFORMATION
  Report Type: Spontaneous
  Country: US (occurrence: None)
  Receive Date: 20131205
  Receipt Date: 20131205
  Transmission Date: 20140711
  Serious: No
  Sender: FDA-Public Use
  Company Number: 163-POMAL-13100717

PATIENT
  Age: 65 Year
  Sex: Female

DRUGS (8)
  1. POMALYST (POMALIDOMIDE) (4 MILLIGRAM, CAPSULES) [Suspect]
     Indication: PLASMA CELL MYELOMA
     Route: 048
     Dates: start: 201305
  2. ZOMETA (ZOLEDRONIC ACID) [Concomitant]
  3. MULTIVITAMIN (MULTIVITAMINS) [Concomitant]
  4. CALTRATE 600 + D (CALCITE D) [Concomitant]
  5. AMLODIPINE BESYLATE (AMLODIPINE BESYLATE) [Concomitant]
  6. DEXAMETHASONE (DEXAMETHASONE) [Concomitant]
  7. ASPIRIN (ACETYLSALICYLIC ACID) [Concomitant]
  8. OMEPRAZOLE -BICARB [Concomitant]

REACTIONS (2)
  - Hypertonic bladder [None]
  - Flatulence [None]
